FAERS Safety Report 5591367-X (Version None)
Quarter: 2008Q1

REPORT INFORMATION
  Report Type: 
  Country: None (occurrence: None)
  Receive Date: 20080111
  Receipt Date: 20080111
  Transmission Date: 20080703
  Serious: Yes (Other)
  Sender: FDA-Public Use
  Company Number: None

PATIENT
  Age: 41 Year
  Sex: Male
  Weight: 92.9874 kg

DRUGS (1)
  1. TYLENOL ALLERGY MULTI-SYMPTOM ACETAMINOPHEN TYLENOL 325 MG IN EACH PIL [Suspect]
     Indication: NASOPHARYNGITIS
     Dosage: 2 CAPLETS  EVERY 4 HRS  PO (DURATION: ONLY ONE TIME TAKEN)
     Route: 048
     Dates: start: 20071231, end: 20071231

REACTIONS (1)
  - FACIAL PALSY [None]
